FAERS Safety Report 7626133-4 (Version None)
Quarter: 2011Q3

REPORT INFORMATION
  Report Type: 
  Country: None (occurrence: None)
  Receive Date: 20110721
  Receipt Date: 20110707
  Transmission Date: 20111222
  Serious: Yes (Death, Hospitalization)
  Sender: FDA-Public Use
  Company Number: US-PFIZER INC-2011163555

PATIENT
  Age: 14 Year
  Sex: Male

DRUGS (4)
  1. TOBACCO [Suspect]
     Dosage: UNK
     Route: 048
     Dates: end: 20080101
  2. CITALOPRAM [Suspect]
     Dosage: UNK
     Route: 048
     Dates: end: 20080101
  3. MELOXICAM [Suspect]
     Dosage: UNK
     Route: 048
     Dates: end: 20080101
  4. METAXALONE [Suspect]
     Dosage: UNK
     Route: 048
     Dates: end: 20080101

REACTIONS (1)
  - DRUG ABUSE [None]
